FAERS Safety Report 16770415 (Version 2)
Quarter: 2022Q3

REPORT INFORMATION
  Report Type: Spontaneous
  Country: FR (occurrence: FR)
  Receive Date: 20190904
  Receipt Date: 20220718
  Transmission Date: 20221027
  Serious: Yes (Hospitalization, Other)
  Sender: FDA-Public Use
  Company Number: FR-VIIV HEALTHCARE LIMITED-FR2019EME158955

PATIENT

DRUGS (7)
  1. TRIUMEQ [Suspect]
     Active Substance: ABACAVIR SULFATE\DOLUTEGRAVIR SODIUM\LAMIVUDINE
     Indication: HIV infection
     Dosage: 1 DF, QD
     Route: 048
     Dates: start: 20190825, end: 20190828
  2. ACETAMINOPHEN [Suspect]
     Active Substance: ACETAMINOPHEN
     Indication: Pain
     Dosage: 1 G, PRN  (1G*3/D)
     Route: 048
     Dates: start: 20190806
  3. ATARAX [Suspect]
     Active Substance: HYDROXYZINE HYDROCHLORIDE
     Indication: Insomnia
     Dosage: 25 MG, UNK
     Route: 054
     Dates: start: 20190806
  4. ATARAX [Suspect]
     Active Substance: HYDROXYZINE HYDROCHLORIDE
     Indication: Anxiety
     Dosage: UNK
  5. PYRIMETHAMINE [Suspect]
     Active Substance: PYRIMETHAMINE
     Indication: Cerebral toxoplasmosis
     Dosage: 50 MG, QD
     Route: 048
     Dates: start: 20190806
  6. SULFADIAZINE [Suspect]
     Active Substance: SULFADIAZINE
     Indication: Cerebral toxoplasmosis
     Dosage: 3 DF, QID
     Route: 048
     Dates: start: 20190806, end: 20190823
  7. SULFADIAZINE [Suspect]
     Active Substance: SULFADIAZINE
     Dosage: 2 DF, QID
     Route: 048
     Dates: start: 20190823

REACTIONS (6)
  - Immune thrombocytopenia [Unknown]
  - Herpes zoster [Unknown]
  - Purpura [Unknown]
  - Neutropenia [Unknown]
  - Leukopenia [Unknown]
  - Thrombocytopenia [Unknown]

NARRATIVE: CASE EVENT DATE: 20190827
